FAERS Safety Report 20741303 (Version 1)
Quarter: 2022Q2

REPORT INFORMATION
  Report Type: Report from Study
  Country: KR (occurrence: KR)
  Receive Date: 20220422
  Receipt Date: 20220422
  Transmission Date: 20220721
  Serious: Yes (Death, Hospitalization)
  Sender: FDA-Public Use
  Company Number: KR-002147023-NVSC2022KR052330

PATIENT

DRUGS (3)
  1. RUXOLITINIB [Suspect]
     Active Substance: RUXOLITINIB
     Indication: Myelofibrosis
     Dosage: 10 MG
     Route: 048
     Dates: start: 20210203, end: 20210928
  2. RUXOLITINIB [Suspect]
     Active Substance: RUXOLITINIB
     Dosage: 15 MG
     Route: 048
     Dates: start: 20210929, end: 20211208
  3. RUXOLITINIB [Suspect]
     Active Substance: RUXOLITINIB
     Dosage: UNK, BID
     Route: 065

REACTIONS (6)
  - Acute kidney injury [Fatal]
  - Flank pain [Fatal]
  - Arthralgia [Fatal]
  - Neutropenia [Fatal]
  - Acute myeloid leukaemia [Fatal]
  - Chest pain [Fatal]

NARRATIVE: CASE EVENT DATE: 20211202
